FAERS Safety Report 4511789-5 (Version None)
Quarter: 2004Q4

REPORT INFORMATION
  Report Type: 
  Country: None (occurrence: None)
  Receive Date: 20041123
  Receipt Date: 20041123
  Transmission Date: 20050328
  Serious: Yes (Other)
  Sender: FDA-Public Use
  Company Number: None

PATIENT
  Age: 61 Year
  Sex: Male
  Weight: 89.8 kg

DRUGS (11)
  1. SIMVASTATIN [Suspect]
  2. LORATADINE [Concomitant]
  3. PROPOXYPHENE N 100/APAP 650 [Concomitant]
  4. ALBUTEROL 90/IPRATROP 18MCG [Concomitant]
  5. ATENOLOL [Concomitant]
  6. FORMOTEROL FUMARATE [Concomitant]
  7. GABAPENTIN [Concomitant]
  8. MULTI-VITAMIN [Concomitant]
  9. NITROGLYCERIN [Concomitant]
  10. RABEPRAZOLE NA [Concomitant]
  11. RAMIPRIL [Concomitant]

REACTIONS (1)
  - MYALGIA [None]
